FAERS Safety Report 17568661 (Version 1)
Quarter: 2020Q1

REPORT INFORMATION
  Report Type: Spontaneous
  Country: US (occurrence: US)
  Receive Date: 20200320
  Receipt Date: 20200320
  Transmission Date: 20200409
  Serious: Yes (Other)
  Sender: FDA-Public Use
  Company Number: US-BAXTER-2020BAX006287

PATIENT
  Age: 64 Year
  Sex: Female

DRUGS (3)
  1. DOXIL [Suspect]
     Active Substance: DOXORUBICIN HYDROCHLORIDE
     Indication: BREAST ANGIOSARCOMA
     Dosage: GIVEN OVER 18 H WEEKLY FOR THREE WEEKS ON DAYS 1, 8, AND 15; CYCLICAL?STOPPED
     Route: 042
  2. CISPLATIN. [Concomitant]
     Active Substance: CISPLATIN
     Indication: BREAST ANGIOSARCOMA
     Dosage: INFUSED WEEKLY FOR THREE WEEKS ON DAYS 2, 9 AND 16; CYCLICAL
     Route: 042
  3. PACLITAXEL. [Concomitant]
     Active Substance: PACLITAXEL
     Indication: BREAST ANGIOSARCOMA
     Dosage: INFUSED WEEKLY FOR THREE WEEKS ON DAYS 2, 9 AND 16; CYCLICAL
     Route: 042

REACTIONS (4)
  - Neutropenia [Unknown]
  - Myalgia [Unknown]
  - Anaemia [Unknown]
  - Nausea [Unknown]
